FAERS Safety Report 7405576-8 (Version None)
Quarter: 2011Q2

REPORT INFORMATION
  Report Type: 
  Country: None (occurrence: None)
  Receive Date: 20110411
  Receipt Date: 20110328
  Transmission Date: 20111010
  Serious: Yes (Other)
  Sender: FDA-Public Use
  Company Number: PHHY2011JP14698

PATIENT
  Age: 48 Year
  Sex: Male

DRUGS (1)
  1. CLOZAPINE [Suspect]
     Indication: SCHIZOPHRENIA
     Dosage: UNK
     Route: 048
     Dates: start: 20110101, end: 20110323

REACTIONS (6)
  - C-REACTIVE PROTEIN DECREASED [None]
  - PYREXIA [None]
  - VIRAL INFECTION [None]
  - RESPIRATORY FAILURE [None]
  - GLUCOSE TOLERANCE IMPAIRED [None]
  - PSYCHIATRIC SYMPTOM [None]
